FAERS Safety Report 8329397 (Version 7)
Quarter: 2014Q3

REPORT INFORMATION
  Report Type: Spontaneous
  Country: US (occurrence: US)
  Receive Date: 20120110
  Receipt Date: 20140822
  Transmission Date: 20150326
  Serious: Yes (Hospitalization, Other)
  Sender: FDA-Public Use
  Company Number: US-MERCK-1201USA00756

PATIENT
  Sex: Female
  Weight: 59.87 kg

DRUGS (6)
  1. FOSAMAX [Suspect]
     Active Substance: ALENDRONATE SODIUM
     Indication: OSTEOPOROSIS
     Dosage: 10 MG, QD
     Route: 048
     Dates: start: 19990505, end: 201010
  2. ALLEGRA [Concomitant]
     Active Substance: FEXOFENADINE HYDROCHLORIDE
     Indication: SEASONAL ALLERGY
  3. MK-0805 [Concomitant]
     Active Substance: FUROSEMIDE
     Indication: OEDEMA
  4. FOSAMAX [Suspect]
     Active Substance: ALENDRONATE SODIUM
     Dosage: 70 MG, QW
     Route: 048
     Dates: end: 201010
  5. BONIVA [Suspect]
     Active Substance: IBANDRONATE SODIUM
     Dates: start: 199905, end: 201010
  6. ACTONEL [Suspect]
     Active Substance: RISEDRONATE SODIUM
     Dates: start: 199905, end: 201010

REACTIONS (27)
  - Carotid artery stenosis [Unknown]
  - Back pain [Unknown]
  - Osteoarthritis [Unknown]
  - Adverse event [Unknown]
  - Fall [Unknown]
  - Femur fracture [Unknown]
  - Vitamin B12 deficiency [Unknown]
  - Infectious colitis [Unknown]
  - Foot deformity [Unknown]
  - Pain in extremity [Unknown]
  - Chronic hepatitis B [Not Recovered/Not Resolved]
  - Anxiety [Unknown]
  - Proctitis [Unknown]
  - Haemorrhoids [Unknown]
  - Spondylolysis [Unknown]
  - Spinal compression fracture [Unknown]
  - Cholelithiasis [Unknown]
  - Colitis microscopic [Unknown]
  - Blood cholesterol increased [Unknown]
  - Ecchymosis [Unknown]
  - Fall [Unknown]
  - Fall [Unknown]
  - Ligament sprain [Unknown]
  - Chronic gastritis [Not Recovered/Not Resolved]
  - Essential hypertension [Unknown]
  - Arthralgia [Unknown]
  - Spondylolisthesis [Unknown]

NARRATIVE: CASE EVENT DATE: 20020222
